FAERS Safety Report 9808224 (Version 2)
Quarter: 2014Q1

REPORT INFORMATION
  Report Type: Spontaneous
  Country: US (occurrence: US)
  Receive Date: 20140110
  Receipt Date: 20140117
  Transmission Date: 20141002
  Serious: Yes (Death, Other)
  Sender: FDA-Public Use
  Company Number: US-009507513-1401USA002839

PATIENT
  Sex: Male

DRUGS (1)
  1. EMEND [Suspect]
     Indication: NEOPLASM MALIGNANT
     Dosage: 150 MG, ONCE, SCHEDULE TO BE GIVEN Q3W
     Route: 042
     Dates: start: 20131223

REACTIONS (3)
  - Lung cancer metastatic [Fatal]
  - Metastases to bone [Fatal]
  - Metastases to liver [Fatal]
